FAERS Safety Report 9322276 (Version 3)
Quarter: 2013Q3

REPORT INFORMATION
  Report Type: Spontaneous
  Country: JP (occurrence: JP)
  Receive Date: 20130531
  Receipt Date: 20130716
  Transmission Date: 20140515
  Serious: Yes (Hospitalization)
  Sender: FDA-Public Use
  Company Number: JP-GLAXOSMITHKLINE-B0894308A

PATIENT
  Age: 1 Month
  Sex: Male

DRUGS (3)
  1. LAMICTAL [Suspect]
     Indication: EPILEPSY
     Route: 063
  2. TEGRETOL [Concomitant]
     Indication: EPILEPSY
     Route: 063
  3. MYSTAN [Concomitant]
     Indication: EPILEPSY
     Route: 063

REACTIONS (6)
  - Liver disorder [Recovering/Resolving]
  - Poor weight gain neonatal [Recovering/Resolving]
  - Somnolence [Unknown]
  - Feeding disorder neonatal [Unknown]
  - Malnutrition [Unknown]
  - Exposure during breast feeding [Unknown]
